FAERS Safety Report 20053076 (Version 6)
Quarter: 2022Q4

REPORT INFORMATION
  Report Type: Report from Study
  Country: US (occurrence: US)
  Receive Date: 20211110
  Receipt Date: 20221022
  Transmission Date: 20230113
  Serious: Yes (Other)
  Sender: FDA-Public Use
  Company Number: US-NOVARTISTESTPH-NVSC2021US255834

PATIENT
  Age: 79 Year
  Sex: Male

DRUGS (2)
  1. ENTRESTO [Suspect]
     Active Substance: SACUBITRIL\VALSARTAN
     Indication: Product used for unknown indication
     Dosage: 1 DOSAGE FORM, BID (24/26 MG)
     Route: 048
     Dates: start: 202110
  2. ENTRESTO [Suspect]
     Active Substance: SACUBITRIL\VALSARTAN
     Dosage: 1 DOSAGE FORM, BID (49.51 MG)
     Route: 048

REACTIONS (6)
  - Neuropathy peripheral [Unknown]
  - Blood pressure abnormal [Not Recovered/Not Resolved]
  - Weight fluctuation [Recovering/Resolving]
  - Blood glucose abnormal [Not Recovered/Not Resolved]
  - Thermal burn [Unknown]
  - Localised infection [Unknown]

NARRATIVE: CASE EVENT DATE: 20211201
